FAERS Safety Report 5161468-9 (Version None)
Quarter: 2006Q4

REPORT INFORMATION
  Report Type: 
  Country: None (occurrence: None)
  Receive Date: 20061130
  Receipt Date: 20060815
  Transmission Date: 20070319
  Serious: No
  Sender: FDA-Public Use
  Company Number: US-GLAXOSMITHKLINE-A0616757A

PATIENT
  Age: 67 Year
  Sex: Female

DRUGS (9)
  1. WELLBUTRIN XL [Suspect]
     Indication: TENSION HEADACHE
     Dosage: 300MG PER DAY
     Route: 048
     Dates: start: 20060811, end: 20060814
  2. PREMARIN [Concomitant]
  3. OXYCONTIN [Concomitant]
  4. NEURONTIN [Concomitant]
  5. SYNTHROID [Concomitant]
  6. ENALAPRIL MALEATE [Concomitant]
  7. ASPIRIN [Concomitant]
  8. ZYRTEC [Concomitant]
  9. TRAZODONE HCL [Concomitant]

REACTIONS (4)
  - AMNESIA [None]
  - COORDINATION ABNORMAL [None]
  - DIZZINESS [None]
  - HEADACHE [None]
